FAERS Safety Report 17193289 (Version 1)
Quarter: 2019Q4

REPORT INFORMATION
  Report Type: Report from Study
  Country: US (occurrence: US)
  Receive Date: 20191223
  Receipt Date: 20191223
  Transmission Date: 20200122
  Serious: Yes (Hospitalization)
  Sender: FDA-Public Use
  Company Number: US-ACTELION-A-US2016-145414

PATIENT
  Age: 63 Year
  Sex: Female

DRUGS (18)
  1. ALBUTEROL. [Concomitant]
     Active Substance: ALBUTEROL
     Dosage: UNK, PRN
  2. PATADAY [Concomitant]
     Active Substance: OLOPATADINE HYDROCHLORIDE
     Dosage: UNK, QD
  3. OPSUMIT [Interacting]
     Active Substance: MACITENTAN
     Indication: PULMONARY HYPERTENSION
     Dosage: 10 MG, QD
     Route: 048
     Dates: start: 20140808
  4. ISONIAZID. [Suspect]
     Active Substance: ISONIAZID
     Indication: LATENT TUBERCULOSIS
     Route: 065
  5. LEVOTHYROXINE. [Concomitant]
     Active Substance: LEVOTHYROXINE
     Dosage: UNK, QD
  6. OPSUMIT [Interacting]
     Active Substance: MACITENTAN
     Dosage: 10 MG, QD
     Route: 048
     Dates: start: 20160506
  7. LORATADINE. [Concomitant]
     Active Substance: LORATADINE
     Dosage: UNK, QD
  8. FUROSEMIDE. [Concomitant]
     Active Substance: FUROSEMIDE
     Dosage: UNK, QD
  9. UPTRAVI [Suspect]
     Active Substance: SELEXIPAG
     Dosage: 1400 MCG, BID
     Route: 048
  10. RIFAMPIN. [Interacting]
     Active Substance: RIFAMPIN
     Indication: LATENT TUBERCULOSIS
     Route: 065
  11. ADEMPAS [Concomitant]
     Active Substance: RIOCIGUAT
     Dosage: 2 MG, TID
     Dates: start: 20150429
  12. UPTRAVI [Suspect]
     Active Substance: SELEXIPAG
     Indication: PULMONARY HYPERTENSION
     Dosage: 1600 MCG, BID
     Route: 048
     Dates: start: 20160503
  13. POLYETHYLENE GLYCOL [Concomitant]
     Active Substance: POLYETHYLENE GLYCOLS
     Dosage: UNK, PRN
  14. COENZYME Q10 [Concomitant]
     Active Substance: UBIDECARENONE
     Dosage: UNK, QD
  15. SPIRONOLACTONE. [Concomitant]
     Active Substance: SPIRONOLACTONE
     Dosage: UNK, QD
  16. ATORVASTATIN [Concomitant]
     Active Substance: ATORVASTATIN
     Dosage: UNK, QD
  17. POTASSIUM [Concomitant]
     Active Substance: POTASSIUM
     Dosage: UNK, QD
  18. DIGOXIN. [Concomitant]
     Active Substance: DIGOXIN
     Dosage: UNK, QD

REACTIONS (14)
  - Sinusitis [Unknown]
  - Dental operation [Unknown]
  - Nasal congestion [Unknown]
  - Labelled drug-drug interaction medication error [Unknown]
  - Nasopharyngitis [Unknown]
  - Throat irritation [Unknown]
  - Oxygen therapy [Unknown]
  - Oxygen saturation decreased [Not Recovered/Not Resolved]
  - Pancreatitis [Unknown]
  - Pain [Unknown]
  - Headache [Unknown]
  - Red blood cell count increased [Not Recovered/Not Resolved]
  - Adverse event [Unknown]
  - Latent tuberculosis [Unknown]

NARRATIVE: CASE EVENT DATE: 20161107
